FAERS Safety Report 15656994 (Version 1)
Quarter: 2018Q4

REPORT INFORMATION
  Report Type: Report from Study
  Country: US (occurrence: US)
  Receive Date: 20181126
  Receipt Date: 20181126
  Transmission Date: 20190205
  Serious: Yes (Other)
  Sender: FDA-Public Use
  Company Number: US-SAKK-2018SA154570AA

PATIENT
  Age: 66 Year
  Sex: Female

DRUGS (2)
  1. INSULIN GLARGINE [Suspect]
     Active Substance: INSULIN GLARGINE
     Indication: DIABETES MELLITUS
     Dosage: UNK UNK, UNK
     Route: 065
  2. LANTUS SOLOSTAR [Suspect]
     Active Substance: INSULIN GLARGINE
     Indication: DIABETES MELLITUS
     Dosage: 65 U, QD
     Route: 065

REACTIONS (11)
  - Hypertension [Not Recovered/Not Resolved]
  - Asthenia [Recovered/Resolved]
  - Dehydration [Recovered/Resolved]
  - Vomiting [Recovered/Resolved]
  - Hyperhidrosis [Recovered/Resolved]
  - Atrioventricular block [Recovered/Resolved]
  - Accommodation disorder [Not Recovered/Not Resolved]
  - Diarrhoea [Recovered/Resolved]
  - Abnormal behaviour [Recovered/Resolved]
  - Blood glucose fluctuation [Recovered/Resolved]
  - Dizziness [Recovered/Resolved]
